FAERS Safety Report 5334509-3 (Version None)
Quarter: 2007Q2

REPORT INFORMATION
  Report Type: 
  Country: None (occurrence: None)
  Receive Date: 20070525
  Receipt Date: 20070521
  Transmission Date: 20071010
  Serious: Yes (Death)
  Sender: FDA-Public Use
  Company Number: DK-ASTRAZENECA-2007AC00919

PATIENT
  Age: 64 Year
  Sex: Male

DRUGS (3)
  1. BUPIVACAINE [Suspect]
     Indication: EPIDURAL ANAESTHESIA
     Route: 008
  2. DOPAMINE HCL [Suspect]
     Route: 042
  3. DOPAMINE HCL [Suspect]
     Route: 042

REACTIONS (2)
  - MYOCARDIAL INFARCTION [None]
  - WRONG DRUG ADMINISTERED [None]
